FAERS Safety Report 10487228 (Version 1)
Quarter: 2014Q4

REPORT INFORMATION
  Report Type: Spontaneous
  Country: US (occurrence: US)
  Receive Date: 20141001
  Receipt Date: 20141001
  Transmission Date: 20150528
  Serious: Yes (Hospitalization)
  Sender: FDA-Public Use
  Company Number: US-LUNDBECK-DKLU1103858

PATIENT
  Age: 9 Year
  Sex: Female

DRUGS (1)
  1. SABRIL [Suspect]
     Active Substance: VIGABATRIN
     Indication: TRACHEITIS
     Route: 048
     Dates: start: 20110516

REACTIONS (2)
  - Escherichia infection [Unknown]
  - Tracheitis [Unknown]

NARRATIVE: CASE EVENT DATE: 20140916
